FAERS Safety Report 12527878 (Version 1)
Quarter: 2016Q3

REPORT INFORMATION
  Report Type: Spontaneous
  Country: US (occurrence: US)
  Receive Date: 20160705
  Receipt Date: 20160705
  Transmission Date: 20161109
  Serious: Yes (Hospitalization)
  Sender: FDA-Public Use
  Company Number: US-IMPAX LABORATORIES, INC-2016-IPXL-00675

PATIENT
  Age: 20 Year
  Sex: Male

DRUGS (1)
  1. BUPROPION HYDROCHLORIDE EXTENDED-RELEASE [Suspect]
     Active Substance: BUPROPION HYDROCHLORIDE
     Indication: PRODUCT USED FOR UNKNOWN INDICATION
     Dosage: 27 PILLS OF 300 MG
     Route: 065

REACTIONS (6)
  - Coma [Recovered/Resolved]
  - Hallucination, visual [Recovered/Resolved]
  - Generalised tonic-clonic seizure [Recovered/Resolved]
  - Hallucination, tactile [Recovered/Resolved]
  - Intentional overdose [Unknown]
  - Suicide attempt [Unknown]
